FAERS Safety Report 19686618 (Version 10)
Quarter: 2022Q3

REPORT INFORMATION
  Report Type: Report from Study
  Country: DE (occurrence: DE)
  Receive Date: 20210811
  Receipt Date: 20220128
  Transmission Date: 20221027
  Serious: Yes (Other)
  Sender: FDA-Public Use
  Company Number: DE-ANIPHARMA-2021-DE-000179

PATIENT
  Age: 36 Year
  Sex: Female

DRUGS (18)
  1. CANDESARTAN CILEXETIL [Suspect]
     Active Substance: CANDESARTAN CILEXETIL
     Indication: Hypertension
     Dosage: 16 MG DAILY
     Route: 048
  2. CALCIUM CARBONATE\CHOLECALCIFEROL [Concomitant]
     Active Substance: CALCIUM CARBONATE\CHOLECALCIFEROL
     Route: 048
  3. ACETIC ACID, CALCIUM CHLORIDE DIHYDRATE, GLUCOSE, MAGNESIUM CHLORIDE H [Concomitant]
     Route: 048
  4. ADALIMUMAB [Concomitant]
     Active Substance: ADALIMUMAB
     Dosage: 40 MG Q2WK
     Route: 058
  5. XIPAMIDE [Concomitant]
     Active Substance: XIPAMIDE
     Dosage: 20 MG DAILY / UNKNOWN DOSE
     Route: 048
  6. CALCIUM [Concomitant]
     Active Substance: CALCIUM
     Route: 048
  7. KALIUM-R [Concomitant]
     Dosage: 9 DF DAILY
     Route: 048
  8. ABALONE SHELL, BORNEOL, CALCIUM CARBONATE, MERCURIUC SULFIDE, RED, MER [Concomitant]
     Route: 065
  9. SPIRONOLACTONE [Concomitant]
     Active Substance: SPIRONOLACTONE
     Dosage: 25 MG DAILY
     Route: 048
  10. MAGNESIUM [Concomitant]
     Active Substance: MAGNESIUM
     Route: 065
  11. PARATHYROID HORMONE [Suspect]
     Active Substance: PARATHYROID HORMONE
     Dosage: 25 UG DAILY / 25 UG DAILY / 25 UG DAILY / 25 UG BID
     Route: 058
     Dates: start: 20170928
  12. CALCITRAT [Concomitant]
     Route: 048
  13. ASCORBIC ACID, CALCITRIOL, NICOTINAMIDE, RETINOL, RIBOFLAVIN, THIAMINE [Concomitant]
     Route: 048
  14. (6S)-5-METHYLTETRAHYDROFOLATE GLUCOSAMINE, COLECALCIFEROL, FOLIC ACID, [Concomitant]
     Route: 065
  15. PANTOPRAZOLE [Suspect]
     Active Substance: PANTOPRAZOLE
     Dosage: 20 MG QD
     Route: 048
  16. CORTISONE [Suspect]
     Active Substance: CORTISONE
     Dosage: 5 MG DAILY / 5 MG DAILY
     Route: 048
  17. LEVOTHYROXINE SODIUM [Concomitant]
     Active Substance: LEVOTHYROXINE SODIUM
     Dosage: 150 UG DAILY
     Route: 048
  18. ADALIMUMAB-ATTO [Concomitant]
     Active Substance: ADALIMUMAB-ATTO
     Dosage: 40 MG Q2WK / UNKNOWN DOSE
     Route: 048

REACTIONS (11)
  - Hypocalcaemia [Recovered/Resolved]
  - Maternal exposure during breast feeding [Recovered/Resolved]
  - Weight decreased [Recovered/Resolved]
  - Weight increased [Recovered/Resolved]
  - Premature delivery [Recovered/Resolved]
  - Maternal exposure during pregnancy [Recovered/Resolved]
  - Diarrhoea [Recovered/Resolved]
  - Therapy interrupted [Recovered/Resolved]
  - Abortion spontaneous [Recovered/Resolved]
  - Paraesthesia [Recovering/Resolving]
  - Pregnancy [Recovered/Resolved]

NARRATIVE: CASE EVENT DATE: 20170928
